FAERS Safety Report 15299450 (Version 1)
Quarter: 2018Q3

REPORT INFORMATION
  Report Type: Spontaneous
  Country: ES (occurrence: ES)
  Receive Date: 20180821
  Receipt Date: 20180821
  Transmission Date: 20181010
  Serious: Yes (Hospitalization)
  Sender: FDA-Public Use
  Company Number: ES-TEVA-2018-ES-944305

PATIENT
  Age: 69 Year
  Sex: Male
  Weight: 110 kg

DRUGS (1)
  1. ATORVASTATIN [Suspect]
     Active Substance: ATORVASTATIN
     Dosage: 20 MILLIGRAM DAILY;
     Route: 048
     Dates: start: 2018

REACTIONS (1)
  - Necrotising myositis [Unknown]

NARRATIVE: CASE EVENT DATE: 2018
